FAERS Safety Report 11398936 (Version 1)
Quarter: 2015Q3

REPORT INFORMATION
  Report Type: Spontaneous
  Country: US (occurrence: None)
  Receive Date: 20150818
  Receipt Date: 20150818
  Transmission Date: 20151125
  Serious: Yes (Death, Hospitalization)
  Sender: FDA-Public Use
  Company Number: None

PATIENT
  Age: 77 Year
  Sex: Male
  Weight: 97.7 kg

DRUGS (3)
  1. DEXAMETHASONE. [Suspect]
     Active Substance: DEXAMETHASONE
     Dates: end: 20150212
  2. LENALIDOMIDE [Suspect]
     Active Substance: LENALIDOMIDE
     Dates: end: 20140212
  3. VELCADE [Suspect]
     Active Substance: BORTEZOMIB
     Dates: end: 20150213

REACTIONS (10)
  - Vomiting [None]
  - Myocardial infarction [None]
  - Pulse absent [None]
  - Nervous system disorder [None]
  - Venous thrombosis [None]
  - Unresponsive to stimuli [None]
  - Cardiac disorder [None]
  - Respiratory arrest [None]
  - Aspiration [None]
  - Foreign body [None]

NARRATIVE: CASE EVENT DATE: 20150213
